FAERS Safety Report 4388755-6 (Version None)
Quarter: 2004Q2

REPORT INFORMATION
  Report Type: 
  Country: None (occurrence: None)
  Receive Date: 20040624
  Receipt Date: 20040615
  Transmission Date: 20050107
  Serious: Yes (Other)
  Sender: FDA-Public Use
  Company Number: 2004-06-1247

PATIENT
  Age: 48 Year
  Sex: Female

DRUGS (3)
  1. PEG-INTRON [Suspect]
     Indication: HEPATITIS C
  2. SOMA [Concomitant]
  3. ZYRTEC [Concomitant]

REACTIONS (4)
  - CLUMSINESS [None]
  - CONCUSSION [None]
  - FALL [None]
  - PHARMACEUTICAL PRODUCT COMPLAINT [None]
